FAERS Safety Report 7267055-0 (Version None)
Quarter: 2011Q1

REPORT INFORMATION
  Report Type: 
  Country: None (occurrence: None)
  Receive Date: 20110201
  Receipt Date: 20110118
  Transmission Date: 20110831
  Serious: Yes (Death, Hospitalization, Other)
  Sender: FDA-Public Use
  Company Number: PHHY2011FR06664

PATIENT
  Sex: Male

DRUGS (2)
  1. CELLCEPT [Suspect]
     Indication: RENAL TRANSPLANT
  2. NEORAL [Suspect]
     Indication: RENAL TRANSPLANT
     Dates: end: 20090828

REACTIONS (8)
  - ACUTE RESPIRATORY DISTRESS SYNDROME [None]
  - ABDOMINAL PAIN [None]
  - INFECTION [None]
  - EPSTEIN-BARR VIRUS INFECTION [None]
  - DYSPNOEA [None]
  - B-CELL LYMPHOMA [None]
  - PYREXIA [None]
  - CYTOMEGALOVIRUS INFECTION [None]
